FAERS Safety Report 12314827 (Version 2)
Quarter: 2016Q3

REPORT INFORMATION
  Report Type: Report from Study
  Country: CO (occurrence: CO)
  Receive Date: 20160428
  Receipt Date: 20160805
  Transmission Date: 20161109
  Serious: Yes (Disabling, Other)
  Sender: FDA-Public Use
  Company Number: CO-INCYTE CORPORATION-2015IN004555

PATIENT
  Age: 51 Year
  Sex: Female
  Weight: 85 kg

DRUGS (5)
  1. JAKAFI [Suspect]
     Active Substance: RUXOLITINIB
     Indication: MYELOFIBROSIS
     Dosage: 20 MG, QD
     Route: 048
     Dates: start: 20150418
  2. BABY ASPIRIN [Concomitant]
     Active Substance: ASPIRIN
     Indication: PRODUCT USED FOR UNKNOWN INDICATION
     Dosage: 80 MG, UNK
     Route: 065
  3. RIVAROXABAN [Concomitant]
     Active Substance: RIVAROXABAN
     Indication: ANTICOAGULANT THERAPY
     Dosage: UNK UNK, QD
     Route: 065
  4. ASPIRIN ^BAYER^ [Concomitant]
     Active Substance: ASPIRIN
     Indication: PRODUCT USED FOR UNKNOWN INDICATION
     Dosage: 81 MG, QD
     Route: 048
  5. RIVAROXABAN [Concomitant]
     Active Substance: RIVAROXABAN
     Dosage: UNK UNK, QD
     Route: 065

REACTIONS (11)
  - Anaemia [Unknown]
  - Splenomegaly [Unknown]
  - Weight increased [Unknown]
  - Concomitant disease aggravated [Unknown]
  - Headache [Unknown]
  - Eyelid ptosis [Unknown]
  - Overweight [Unknown]
  - Fatigue [Unknown]
  - Transaminases increased [Unknown]
  - Memory impairment [Unknown]
  - Blood alkaline phosphatase increased [Unknown]

NARRATIVE: CASE EVENT DATE: 20150526
